FAERS Safety Report 17104471 (Version 1)
Quarter: 2019Q4

REPORT INFORMATION
  Report Type: Spontaneous
  Country: US (occurrence: US)
  Receive Date: 20191107
  Receipt Date: 20191107
  Transmission Date: 20200122
  Serious: No
  Sender: FDA-Public Use
  Company Number: None

PATIENT
  Age: 60 Year

DRUGS (1)
  1. NP THYROID [Suspect]
     Active Substance: LEVOTHYROXINE\LIOTHYRONINE

REACTIONS (5)
  - Tri-iodothyronine free increased [None]
  - Blood thyroid stimulating hormone decreased [None]
  - Extrasystoles [None]
  - Heart rate increased [None]
  - Hypertension [None]

NARRATIVE: CASE EVENT DATE: 20191009
